FAERS Safety Report 9062733 (Version 2)
Quarter: 2013Q1

REPORT INFORMATION
  Report Type: Report from Study
  Country: FI (occurrence: FI)
  Receive Date: 20130128
  Receipt Date: 20130218
  Transmission Date: 20140127
  Serious: Yes (Life-Threatening, Hospitalization)
  Sender: FDA-Public Use
  Company Number: FI-BRISTOL-MYERS SQUIBB COMPANY-17075763

PATIENT
  Age: 74 Year
  Sex: Female

DRUGS (2)
  1. APIXABAN [Suspect]
     Indication: THROMBOSIS PROPHYLAXIS
     Route: 048
     Dates: start: 20100805
  2. APIXABAN [Suspect]
     Indication: THROMBOSIS PROPHYLAXIS
     Dosage: INTERRUPTED ON 24OCT12.
     Route: 048
     Dates: start: 20100805

REACTIONS (2)
  - Subdural haematoma [Recovered/Resolved with Sequelae]
  - Cardiac failure congestive [Recovered/Resolved]
